FAERS Safety Report 8971974 (Version 2)
Quarter: 2013Q1

REPORT INFORMATION
  Report Type: Report from Study
  Country: US (occurrence: US)
  Receive Date: 20121218
  Receipt Date: 20130228
  Transmission Date: 20140127
  Serious: Yes (Hospitalization)
  Sender: FDA-Public Use
  Company Number: US-US-EMD SERONO, INC.-7182034

PATIENT
  Sex: Male

DRUGS (3)
  1. REBIF [Suspect]
     Indication: MULTIPLE SCLEROSIS
     Route: 058
     Dates: start: 20111017
  2. LISINOPRIL [Concomitant]
     Indication: HYPERTENSION
  3. METFORMIN [Concomitant]
     Indication: DIABETES MELLITUS

REACTIONS (2)
  - Hypertensive nephropathy [Recovering/Resolving]
  - Fatigue [Unknown]
